FAERS Safety Report 8118328-0 (Version None)
Quarter: 2012Q1

REPORT INFORMATION
  Report Type: 
  Country: None (occurrence: None)
  Receive Date: 20120207
  Receipt Date: 20120201
  Transmission Date: 20120608
  Serious: Yes (Other)
  Sender: FDA-Public Use
  Company Number: US-PFIZER INC-2012028355

PATIENT
  Sex: Male

DRUGS (1)
  1. VIAGRA [Suspect]
     Dosage: 25 MG, UNK

REACTIONS (3)
  - DRUG INEFFECTIVE [None]
  - PANCREATIC NEOPLASM [None]
  - GLUCOSE TOLERANCE IMPAIRED [None]
